FAERS Safety Report 8200367-2 (Version None)
Quarter: 2012Q1

REPORT INFORMATION
  Report Type: 
  Country: None (occurrence: None)
  Receive Date: 20120312
  Receipt Date: 20120302
  Transmission Date: 20120608
  Serious: Yes (Death, Hospitalization, Other)
  Sender: FDA-Public Use
  Company Number: MX-SANOFI-AVENTIS-2012SA014386

PATIENT
  Age: 82 Year
  Sex: Male

DRUGS (3)
  1. PENTOXIFYLLINE [Concomitant]
     Route: 048
     Dates: start: 20040101, end: 20071028
  2. LANTUS [Suspect]
     Indication: TYPE 2 DIABETES MELLITUS
     Dosage: 20 IU IN THE MORNING AND 20 IU AT NIGHT
     Route: 058
     Dates: start: 20070701, end: 20071028
  3. CAPTOPRIL [Concomitant]
     Route: 048
     Dates: start: 19900101, end: 20071028

REACTIONS (4)
  - RENAL FAILURE CHRONIC [None]
  - DRUG ADMINISTRATION ERROR [None]
  - HYPERGLYCAEMIA [None]
  - PNEUMONIA BACTERIAL [None]
